FAERS Safety Report 15301617 (Version 1)
Quarter: 2018Q3

REPORT INFORMATION
  Report Type: Spontaneous
  Country: BR (occurrence: BR)
  Receive Date: 20180821
  Receipt Date: 20180821
  Transmission Date: 20181010
  Serious: Yes (Other)
  Sender: FDA-Public Use
  Company Number: BR-PFIZER INC-2018330654

PATIENT
  Sex: Female

DRUGS (1)
  1. XALATAN [Suspect]
     Active Substance: LATANOPROST
     Indication: GLAUCOMA
     Dosage: 1 DROP IN BOTH EYES AT NIGHT
     Dates: start: 2010

REACTIONS (5)
  - Retinal disorder [Unknown]
  - Gastrointestinal carcinoma [Unknown]
  - Diabetes mellitus [Unknown]
  - Dry eye [Unknown]
  - Eye irritation [Unknown]
